FAERS Safety Report 4865067-5 (Version None)
Quarter: 2005Q4

REPORT INFORMATION
  Report Type: 
  Country: None (occurrence: None)
  Receive Date: 20051223
  Receipt Date: 20051214
  Transmission Date: 20060501
  Serious: Yes (Hospitalization)
  Sender: FDA-Public Use
  Company Number: US-AMGEN-US162250

PATIENT
  Age: 56 Year
  Sex: Female
  Weight: 78.1 kg

DRUGS (7)
  1. PROCRIT [Suspect]
     Indication: PRE-EXISTING DISEASE
     Route: 058
     Dates: start: 20040601, end: 20051213
  2. PEGASYS [Concomitant]
     Route: 058
     Dates: end: 20051129
  3. RIBAVIRIN [Concomitant]
     Dates: end: 20051129
  4. NORVIR [Concomitant]
  5. VALTREX [Concomitant]
  6. DIFLUCAN [Concomitant]
  7. TENOFOVIR DISOPROXIL FUMARAT [Concomitant]

REACTIONS (2)
  - ANAEMIA [None]
  - THERAPEUTIC RESPONSE DECREASED [None]
